FAERS Safety Report 7141855-X (Version None)
Quarter: 2010Q4

REPORT INFORMATION
  Report Type: 
  Country: None (occurrence: None)
  Receive Date: 20101207
  Receipt Date: 20101129
  Transmission Date: 20110411
  Serious: Yes (Congenital Anomaly)
  Sender: FDA-Public Use
  Company Number: PHHY2010PL56985

PATIENT
  Sex: Male
  Weight: 3.66 kg

DRUGS (1)
  1. TRILEPTAL [Suspect]
     Dosage: MATERNAL DOSE WAS 300 MG PER DAY
     Route: 064

REACTIONS (5)
  - CEREBRAL DYSGENESIS [None]
  - DRUG EXPOSURE DURING PREGNANCY [None]
  - DYSMORPHISM [None]
  - PSYCHOMOTOR SKILLS IMPAIRED [None]
  - SKULL MALFORMATION [None]
